FAERS Safety Report 17456575 (Version 2)
Quarter: 2020Q2

REPORT INFORMATION
  Report Type: Spontaneous
  Country: US (occurrence: US)
  Receive Date: 20200225
  Receipt Date: 20200521
  Transmission Date: 20200713
  Serious: No
  Sender: FDA-Public Use
  Company Number: US-PFIZER INC-2020081943

PATIENT
  Age: 60 Year
  Sex: Female

DRUGS (1)
  1. EMBEDA [Suspect]
     Active Substance: MORPHINE SULFATE\NALTREXONE HYDROCHLORIDE
     Dosage: UNK (MORPHINE SULFATE: 50MG; NALTREXONE HYDROCHLORIDE: 2MG)

REACTIONS (1)
  - Therapeutic product effect incomplete [Unknown]
